FAERS Safety Report 16660750 (Version 1)
Quarter: 2019Q3

REPORT INFORMATION
  Report Type: Spontaneous
  Country: US (occurrence: US)
  Receive Date: 20190802
  Receipt Date: 20190802
  Transmission Date: 20191004
  Serious: No
  Sender: FDA-Public Use
  Company Number: US-BAYER-2019-144458

PATIENT
  Age: 73 Year
  Sex: Male
  Weight: 88.89 kg

DRUGS (2)
  1. TYVASO [Suspect]
     Active Substance: TREPROSTINIL
     Indication: PULMONARY ARTERIAL HYPERTENSION
     Dosage: 10-20 BREATHS, QID
     Route: 055
     Dates: start: 20180713
  2. ADEMPAS [Suspect]
     Active Substance: RIOCIGUAT
     Dosage: UNK

REACTIONS (4)
  - Feeling abnormal [None]
  - Bowel movement irregularity [None]
  - Productive cough [None]
  - Oxygen saturation decreased [None]

NARRATIVE: CASE EVENT DATE: 201907
